FAERS Safety Report 5047975-8 (Version None)
Quarter: 2006Q3

REPORT INFORMATION
  Report Type: 
  Country: None (occurrence: None)
  Receive Date: 20060711
  Receipt Date: 20060131
  Transmission Date: 20061208
  Serious: Yes (Death, Life-Threatening, Other)
  Sender: FDA-Public Use
  Company Number: DK-BRISTOL-MYERS SQUIBB COMPANY-13353271

PATIENT
  Age: 48 Year
  Sex: Male

DRUGS (3)
  1. DIDANOSINE [Suspect]
     Indication: HIV INFECTION
  2. LAMIVUDINE [Suspect]
     Indication: HIV INFECTION
  3. ZIDOVUDINE [Suspect]
     Indication: HIV INFECTION

REACTIONS (2)
  - PANCREATITIS [None]
  - T-CELL LYMPHOMA [None]
